FAERS Safety Report 18121190 (Version 2)
Quarter: 2020Q3

REPORT INFORMATION
  Report Type: Spontaneous
  Country: US (occurrence: US)
  Receive Date: 20200807
  Receipt Date: 20200810
  Transmission Date: 20201103
  Serious: Yes (Life-Threatening, Hospitalization, Other)
  Sender: FDA-Public Use
  Company Number: US-CELLTRION INC.-2020US024910

PATIENT

DRUGS (5)
  1. ARIPIPRAZOLE. [Suspect]
     Active Substance: ARIPIPRAZOLE
     Dosage: UNK
  2. TRASTUZUMAB (UNKNOWN) [Suspect]
     Active Substance: TRASTUZUMAB
     Indication: ADJUVANT THERAPY
  3. ONDANSETRON [Suspect]
     Active Substance: ONDANSETRON
  4. TRASTUZUMAB (UNKNOWN) [Suspect]
     Active Substance: TRASTUZUMAB
     Indication: HER2 POSITIVE BREAST CANCER
  5. AZITHROMYCIN ANHYDROUS. [Suspect]
     Active Substance: AZITHROMYCIN ANHYDROUS

REACTIONS (11)
  - Respiratory failure [Unknown]
  - Influenza A virus test positive [Unknown]
  - Bundle branch block left [Recovered/Resolved]
  - Ventricular extrasystoles [Unknown]
  - Sinus bradycardia [Unknown]
  - Acute left ventricular failure [Recovered/Resolved]
  - Torsade de pointes [Unknown]
  - Ejection fraction decreased [Recovered/Resolved]
  - Cardiotoxicity [Recovered/Resolved]
  - Electrocardiogram T wave inversion [Unknown]
  - Ventricular tachycardia [Recovered/Resolved]
